FAERS Safety Report 10785018 (Version 1)
Quarter: 2015Q1

REPORT INFORMATION
  Report Type: Spontaneous
  Country: US (occurrence: US)
  Receive Date: 20150211
  Receipt Date: 20150211
  Transmission Date: 20150721
  Serious: No
  Sender: FDA-Public Use
  Company Number: US-GLAXOSMITHKLINE-A0727713A

PATIENT

DRUGS (7)
  1. LAMICTAL [Suspect]
     Active Substance: LAMOTRIGINE
     Indication: BIPOLAR DISORDER
  2. CLONAZEPAM. [Concomitant]
     Active Substance: CLONAZEPAM
  3. KLONOPIN [Concomitant]
     Active Substance: CLONAZEPAM
     Indication: TOURETTE^S DISORDER
  4. TRICOR [Concomitant]
     Active Substance: FENOFIBRATE
  5. LAMICTAL [Suspect]
     Active Substance: LAMOTRIGINE
     Indication: MOOD SWINGS
     Route: 048
     Dates: start: 2006
  6. HALDOL [Concomitant]
     Active Substance: HALOPERIDOL
  7. DIURETIC [Concomitant]
     Active Substance: UNSPECIFIED INGREDIENT

REACTIONS (2)
  - Rash [Unknown]
  - Hypersensitivity [Recovered/Resolved]

NARRATIVE: CASE EVENT DATE: 2006
